FAERS Safety Report 15899957 (Version 1)
Quarter: 2019Q1

REPORT INFORMATION
  Report Type: Spontaneous
  Country: JP (occurrence: JP)
  Receive Date: 20190201
  Receipt Date: 20190201
  Transmission Date: 20190417
  Serious: Yes (Hospitalization, Other)
  Sender: FDA-Public Use
  Company Number: JP-ELI_LILLY_AND_COMPANY-JP201812009129

PATIENT
  Age: 64 Year
  Sex: Male
  Weight: 44 kg

DRUGS (7)
  1. CYRAMZA [Suspect]
     Active Substance: RAMUCIRUMAB
     Indication: GASTRIC CANCER STAGE IV
     Dosage: 440 MG, CYCLICAL
     Route: 041
     Dates: start: 20181210, end: 20181210
  2. RECTABUL [Concomitant]
     Active Substance: BUDESONIDE
     Indication: COLITIS ULCERATIVE
     Dosage: UNK
     Route: 050
     Dates: start: 20181119, end: 20181210
  3. PACLITAXEL. [Suspect]
     Active Substance: PACLITAXEL
     Indication: GASTRIC CANCER STAGE IV
     Dosage: 130 MG, CYCLICAL
     Route: 041
     Dates: start: 20181210, end: 20181210
  4. LOXOPROFEN SODIUM [Concomitant]
     Active Substance: LOXOPROFEN SODIUM
     Indication: CANCER PAIN
     Dosage: 180 MG, DAILY
     Route: 065
     Dates: start: 20180824, end: 20181219
  5. RAPIACTA [Suspect]
     Active Substance: PERAMIVIR
     Indication: INFLUENZA
     Dosage: UNK
     Route: 065
     Dates: start: 20181215
  6. OXIFAST [Concomitant]
     Active Substance: OXYCODONE
     Dosage: UNK
     Route: 050
     Dates: start: 20181214
  7. TAKECAB [Concomitant]
     Active Substance: VONOPRAZAN FUMURATE
     Indication: GASTRIC CANCER
     Dosage: 10 MG, DAILY
     Route: 065
     Dates: start: 20180713, end: 20181219

REACTIONS (8)
  - Gastric perforation [Recovering/Resolving]
  - Febrile neutropenia [Unknown]
  - Influenza [Recovering/Resolving]
  - Decreased appetite [Recovered/Resolved]
  - Abdominal distension [Unknown]
  - Neutrophil count decreased [Unknown]
  - Haematemesis [Recovered/Resolved]
  - Rash [Recovering/Resolving]

NARRATIVE: CASE EVENT DATE: 20181214
